FAERS Safety Report 4622828-5 (Version None)
Quarter: 2005Q1

REPORT INFORMATION
  Report Type: 
  Country: None (occurrence: None)
  Receive Date: 20050328
  Receipt Date: 20050328
  Transmission Date: 20050727
  Serious: Yes (Death, Life-Threatening, Hospitalization)
  Sender: FDA-Public Use
  Company Number: None

PATIENT
  Age: 85 Year
  Sex: Female

DRUGS (9)
  1. VALPROIC ACID [Suspect]
     Dosage: 125 MG   EVERY 8 HOURS   ORAL
     Route: 048
  2. ALBUTEROL/ATROVENT [Concomitant]
  3. METOPROLOL TARTRATE [Concomitant]
  4. ARICEPT [Concomitant]
  5. ALLOPURINOL [Concomitant]
  6. SEROQUEL [Concomitant]
  7. METHYLPHENIDATE HCL [Concomitant]
  8. PREVACID [Concomitant]
  9. WARFARIN [Concomitant]

REACTIONS (6)
  - CARDIO-RESPIRATORY ARREST [None]
  - CARDIOMYOPATHY [None]
  - COAGULOPATHY [None]
  - ENCEPHALOPATHY [None]
  - HEPATIC FAILURE [None]
  - IDIOSYNCRATIC DRUG REACTION [None]
